FAERS Safety Report 10088428 (Version 1)
Quarter: 2014Q2

REPORT INFORMATION
  Report Type: Spontaneous
  Country: US (occurrence: US)
  Receive Date: 20140421
  Receipt Date: 20140421
  Transmission Date: 20141212
  Serious: No
  Sender: FDA-Public Use
  Company Number: US-BIOGENIDEC-2014BI031488

PATIENT
  Age: 78 Year
  Sex: Female

DRUGS (5)
  1. TECFIDERA [Suspect]
     Indication: MULTIPLE SCLEROSIS
     Route: 048
     Dates: start: 20140129
  2. VITAMIN D [Concomitant]
  3. LISINOPRIL-HYDROCHLOROTHIAZIDE [Concomitant]
  4. AMLODIPINE BESYLATE [Concomitant]
  5. BENAZEPRIL HCL [Concomitant]

REACTIONS (2)
  - Pain [Unknown]
  - Burning sensation [Unknown]
